FAERS Safety Report 4928999-5 (Version None)
Quarter: 2006Q1

REPORT INFORMATION
  Report Type: 
  Country: None (occurrence: None)
  Receive Date: 20060301
  Receipt Date: 20060222
  Transmission Date: 20060701
  Serious: Yes (Hospitalization)
  Sender: FDA-Public Use
  Company Number: 2006CG00375

PATIENT
  Age: 81 Year
  Sex: Female
  Weight: 70 kg

DRUGS (13)
  1. TENORMIN [Suspect]
     Route: 048
     Dates: start: 20051001, end: 20051229
  2. FURADANTIN [Suspect]
     Indication: URINARY TRACT INFECTION
     Route: 048
     Dates: start: 20051101, end: 20051101
  3. FURADANTIN [Suspect]
     Route: 048
     Dates: start: 20051212, end: 20051219
  4. FURADANTIN [Suspect]
     Route: 048
     Dates: start: 20051225, end: 20051229
  5. ACETAMINOPHEN [Suspect]
     Route: 048
     Dates: start: 20050101, end: 20051229
  6. ADANCOR [Concomitant]
     Dates: start: 20051001, end: 20051229
  7. ADANCOR [Concomitant]
     Dates: start: 20060101
  8. KARDEGIC [Concomitant]
     Dates: start: 20051001, end: 20051229
  9. KARDEGIC [Concomitant]
     Dates: start: 20060101
  10. SERMION [Concomitant]
     Dates: start: 20050101, end: 20051229
  11. SERMION [Concomitant]
     Dates: start: 20060101
  12. GAVISCON [Concomitant]
     Route: 048
     Dates: start: 20050101, end: 20051229
  13. TEMESTA [Concomitant]
     Dates: start: 20050101, end: 20051229

REACTIONS (3)
  - HEPATITIS [None]
  - PYREXIA [None]
  - TREMOR [None]
